FAERS Safety Report 9810748 (Version 1)
Quarter: 2014Q1

REPORT INFORMATION
  Report Type: Spontaneous
  Country: US (occurrence: US)
  Receive Date: 20140110
  Receipt Date: 20140110
  Transmission Date: 20141002
  Serious: Yes (Hospitalization)
  Sender: FDA-Public Use
  Company Number: US-SANOFI-AVENTIS-2012SA089954

PATIENT
  Age: 71 Year
  Sex: Female
  Weight: 69.4 kg

DRUGS (17)
  1. PLAVIX [Suspect]
     Indication: PRODUCT USED FOR UNKNOWN INDICATION
     Route: 048
     Dates: start: 20100111
  2. ASPIRIN [Suspect]
     Indication: PRODUCT USED FOR UNKNOWN INDICATION
     Route: 048
     Dates: start: 20100111
  3. BLINDED THERAPY [Concomitant]
     Route: 048
     Dates: start: 20100217
  4. BLINDED THERAPY [Concomitant]
     Dates: start: 20100926
  5. ALENDRONATE SODIUM [Concomitant]
     Dates: start: 20091209
  6. METOPROLOL [Concomitant]
     Dates: start: 20100111, end: 20100129
  7. METOPROLOL [Concomitant]
     Dates: start: 20100130
  8. UNKNOWDRUG [Concomitant]
     Dates: start: 20100112
  9. MULTIVITAMINS [Concomitant]
     Dates: start: 20100110
  10. HYDROCHLOROTHIAZIDE [Concomitant]
     Route: 048
     Dates: start: 20100419
  11. LOSARTAN [Concomitant]
     Route: 048
     Dates: start: 20100510
  12. METFORMIN [Concomitant]
     Dates: start: 20100731
  13. CALCIUM [Concomitant]
     Dates: start: 20100110
  14. LISINOPRIL [Concomitant]
     Dates: start: 20100111, end: 20100120
  15. LISINOPRIL [Concomitant]
  16. AMLODIPINE BESILATE [Concomitant]
     Route: 048
     Dates: start: 20100217, end: 20100509
  17. AMLODIPINE BESILATE [Concomitant]

REACTIONS (1)
  - Haematemesis [Recovered/Resolved]
